FAERS Safety Report 5159937-0 (Version None)
Quarter: 2006Q4

REPORT INFORMATION
  Report Type: 
  Country: None (occurrence: None)
  Receive Date: 20061129
  Receipt Date: 20061120
  Transmission Date: 20070319
  Serious: Yes (Death)
  Sender: FDA-Public Use
  Company Number: FR-AVENTIS-200614101FR

PATIENT
  Age: 75 Year
  Sex: Male

DRUGS (6)
  1. LASILIX                            /00032601/ [Suspect]
     Indication: DRUG USE FOR UNKNOWN INDICATION
     Route: 048
  2. CORDARONE                          /00133102/ [Suspect]
     Indication: DRUG USE FOR UNKNOWN INDICATION
     Route: 048
  3. KARDEGIC                           /00002703/ [Suspect]
     Indication: DRUG USE FOR UNKNOWN INDICATION
  4. MOPRAL                             /00661201/ [Suspect]
     Indication: DRUG USE FOR UNKNOWN INDICATION
  5. COVERSYL 2 MG [Suspect]
     Indication: DRUG USE FOR UNKNOWN INDICATION
  6. NERISONE [Concomitant]
     Indication: DRUG USE FOR UNKNOWN INDICATION
     Route: 023

REACTIONS (9)
  - BRADYCARDIA [None]
  - DEHYDRATION [None]
  - HEART SOUNDS ABNORMAL [None]
  - LOSS OF CONSCIOUSNESS [None]
  - PULSE ABSENT [None]
  - SHOCK [None]
  - SKIN DISCOLOURATION [None]
  - THERAPY NON-RESPONDER [None]
  - TREMOR [None]
